FAERS Safety Report 9747516 (Version 2)
Quarter: 2014Q1

REPORT INFORMATION
  Report Type: Spontaneous
  Country: GB (occurrence: GB)
  Receive Date: 20131212
  Receipt Date: 20140307
  Transmission Date: 20141002
  Serious: Yes (Death, Other)
  Sender: FDA-Public Use
  Company Number: GB-AMGEN-GBRSP2013086141

PATIENT
  Age: 76 Year
  Sex: Male
  Weight: 68 kg

DRUGS (10)
  1. ROMIPLOSTIM [Suspect]
     Indication: IMMUNE THROMBOCYTOPENIC PURPURA
     Dosage: 250 MUG, UNK
     Route: 058
     Dates: start: 20131025, end: 20131115
  2. BLEOMYCIN [Concomitant]
  3. DACARBAZINE [Concomitant]
  4. DALTEPARIN [Concomitant]
  5. DOXORUBICIN [Concomitant]
  6. METOCLOPRAMIDE [Concomitant]
  7. OMEPRAZOLE [Concomitant]
  8. ONDANSETRON [Concomitant]
  9. PREDNISOLONE [Concomitant]
  10. VINBLASTINE [Concomitant]

REACTIONS (7)
  - Pulmonary embolism [Fatal]
  - Cardiac arrest [Not Recovered/Not Resolved]
  - Hypoxia [Not Recovered/Not Resolved]
  - Dyspnoea [Not Recovered/Not Resolved]
  - Syncope [Not Recovered/Not Resolved]
  - Tachycardia [Unknown]
  - Hypotension [Not Recovered/Not Resolved]
